FAERS Safety Report 19914133 (Version 3)
Quarter: 2022Q1

REPORT INFORMATION
  Report Type: Report from Study
  Country: US (occurrence: US)
  Receive Date: 20211004
  Receipt Date: 20220121
  Transmission Date: 20220423
  Serious: No
  Sender: FDA-Public Use
  Company Number: US-NOVARTISTESTPH-NVSC2021US226251

PATIENT
  Age: 71 Year
  Sex: Male

DRUGS (1)
  1. ENTRESTO [Suspect]
     Active Substance: SACUBITRIL\VALSARTAN
     Indication: Cardiac failure
     Dosage: 1 DF, BID (49/51)
     Route: 048
     Dates: start: 20210517

REACTIONS (5)
  - Blood glucose increased [Not Recovered/Not Resolved]
  - Depressed mood [Not Recovered/Not Resolved]
  - Heart valve incompetence [Not Recovered/Not Resolved]
  - Peripheral arterial occlusive disease [Not Recovered/Not Resolved]
  - Peripheral swelling [Not Recovered/Not Resolved]

NARRATIVE: CASE EVENT DATE: 20210917
